FAERS Safety Report 25021656 (Version 1)
Quarter: 2025Q1

REPORT INFORMATION
  Report Type: Spontaneous
  Country: US (occurrence: US)
  Receive Date: 20250228
  Receipt Date: 20250228
  Transmission Date: 20250409
  Serious: No
  Sender: ELI LILLY AND COMPANY
  Company Number: US-ELI_LILLY_AND_COMPANY-US202502017143

PATIENT
  Sex: Female

DRUGS (1)
  1. EMGALITY [Suspect]
     Active Substance: GALCANEZUMAB-GNLM
     Indication: Vestibular migraine
     Route: 058
     Dates: start: 20250219

REACTIONS (11)
  - Dizziness [Unknown]
  - Burning sensation [Unknown]
  - Vomiting [Unknown]
  - Sinus congestion [Recovered/Resolved]
  - Headache [Not Recovered/Not Resolved]
  - Fatigue [Unknown]
  - Brain fog [Unknown]
  - Oropharyngeal pain [Unknown]
  - Underdose [Unknown]
  - Vertigo [Unknown]
  - Injection site bruising [Unknown]

NARRATIVE: CASE EVENT DATE: 20250219
